FAERS Safety Report 7259906-0 (Version None)
Quarter: 2011Q1

REPORT INFORMATION
  Report Type: 
  Country: None (occurrence: None)
  Receive Date: 20110130
  Receipt Date: 20100908
  Transmission Date: 20110831
  Serious: No
  Sender: FDA-Public Use
  Company Number: US-ABBOTT-10P-163-0669344-00

PATIENT
  Age: 46 Year
  Sex: Female

DRUGS (20)
  1. PRAVASTATIN [Concomitant]
     Indication: PRODUCT USED FOR UNKNOWN INDICATION
  2. ULTRAM [Concomitant]
     Indication: ABDOMINAL PAIN
  3. PLAQUENIL [Concomitant]
     Indication: PRODUCT USED FOR UNKNOWN INDICATION
  4. REALPAX [Concomitant]
     Indication: MIGRAINE
  5. DEPAKOTE [Concomitant]
     Indication: PRODUCT USED FOR UNKNOWN INDICATION
  6. SUCRALFATE [Concomitant]
     Indication: PRODUCT USED FOR UNKNOWN INDICATION
     Dosage: BEFORE MEAL
  7. HYDROCODONE [Concomitant]
     Indication: PAIN
     Dosage: 10/325
  8. DICYCLAMINE [Concomitant]
     Indication: PRODUCT USED FOR UNKNOWN INDICATION
  9. AMBIEN [Concomitant]
     Indication: INSOMNIA
     Dosage: AT BEDTIME
  10. HUMIRA [Suspect]
     Indication: RHEUMATOID ARTHRITIS
     Dates: start: 20090901, end: 20100830
  11. ALLEGRA [Concomitant]
     Indication: PRODUCT USED FOR UNKNOWN INDICATION
  12. METHADONE [Concomitant]
     Indication: PRODUCT USED FOR UNKNOWN INDICATION
  13. METHADONE [Concomitant]
     Dosage: 10MG, 1 TAB IN THE AM AND 1 1/2 TAB PM
  14. BUTABITAL AP/CAFFENE [Concomitant]
     Indication: MIGRAINE
  15. NEXIUM [Concomitant]
     Indication: PRODUCT USED FOR UNKNOWN INDICATION
  16. SPIRIVA [Concomitant]
     Indication: PRODUCT USED FOR UNKNOWN INDICATION
  17. PREDNISONE [Concomitant]
     Indication: PRODUCT USED FOR UNKNOWN INDICATION
  18. ALBUTEROL [Concomitant]
     Indication: ASTHMA
  19. TIGAN [Concomitant]
     Indication: NAUSEA
  20. LIDODERM [Concomitant]
     Indication: ARTHRALGIA
     Dosage: PATCHES 5%

REACTIONS (3)
  - ERYTHEMA [None]
  - NAIL INJURY [None]
  - WOUND DRAINAGE [None]
